FAERS Safety Report 6658619-3 (Version None)
Quarter: 2010Q1

REPORT INFORMATION
  Report Type: 
  Country: None (occurrence: None)
  Receive Date: 20100330
  Receipt Date: 20100325
  Transmission Date: 20100710
  Serious: Yes (Other)
  Sender: FDA-Public Use
  Company Number: CH-BRISTOL-MYERS SQUIBB COMPANY-14845606

PATIENT
  Age: 54 Year
  Sex: Female
  Weight: 58 kg

DRUGS (4)
  1. ORENCIA [Suspect]
     Indication: RHEUMATOID ARTHRITIS
     Dosage: LAST INF ON 04NOV09
     Route: 042
     Dates: start: 20080620, end: 20091119
  2. ORENCIA [Suspect]
     Indication: POLYARTHRITIS
     Dosage: LAST INF ON 04NOV09
     Route: 042
     Dates: start: 20080620, end: 20091119
  3. METHOTREXATE [Suspect]
     Dosage: DOSE INCREASED TO 20MG ON 12AUG09
     Dates: start: 20090716
  4. PREDNISONE [Concomitant]

REACTIONS (3)
  - ACUTE MYELOID LEUKAEMIA [None]
  - HAEMOGLOBIN DECREASED [None]
  - LEUKOPENIA [None]
